FAERS Safety Report 11813612 (Version 2)
Quarter: 2016Q1

REPORT INFORMATION
  Report Type: Spontaneous
  Country: FR (occurrence: FR)
  Receive Date: 20151209
  Receipt Date: 20160224
  Transmission Date: 20160525
  Serious: Yes (Hospitalization)
  Sender: FDA-Public Use
  Company Number: FR-FERRINGPH-2015FE04634

PATIENT

DRUGS (5)
  1. FIRMAGON [Suspect]
     Active Substance: DEGARELIX ACETATE
     Indication: PRODUCT USED FOR UNKNOWN INDICATION
     Dosage: 120 MG, ONCE/SINGLE
     Dates: start: 201509, end: 2015
  2. COLCHIMAX                          /00728901/ [Concomitant]
     Active Substance: COLCHICINE\DICYCLOMINE HYDROCHLORIDE
     Dosage: UNK
  3. TOPLEXIL                           /00111401/ [Concomitant]
     Dosage: UNK
  4. HYPNOVEL                           /00634101/ [Concomitant]
     Active Substance: MIDAZOLAM\MIDAZOLAM HYDROCHLORIDE
     Dosage: UNK
  5. ANTIBIOTICS [Concomitant]
     Active Substance: UNSPECIFIED INGREDIENT
     Dosage: UNK

REACTIONS (2)
  - Rash maculo-papular [Unknown]
  - Alopecia [Unknown]

NARRATIVE: CASE EVENT DATE: 20150910
